FAERS Safety Report 25732615 (Version 1)
Quarter: 2025Q3

REPORT INFORMATION
  Report Type: Report from Study
  Country: JP (occurrence: JP)
  Receive Date: 20250827
  Receipt Date: 20250827
  Transmission Date: 20251021
  Serious: Yes (Hospitalization, Other)
  Sender: LGM PHARMA SOLUTIONS, LLC
  Company Number: JP-LGM Pharma Solutions, LLC-2183365

PATIENT
  Age: 79 Year
  Sex: Male

DRUGS (6)
  1. ASCORBIC ACID\POLYETHYLENE GLYCOL 4000\POTASSIUM CL\SOD ASCORBATE\SOD [Suspect]
     Active Substance: ASCORBIC ACID\POLYETHYLENE GLYCOL 4000\POTASSIUM CL\SOD ASCORBATE\SOD CL\SOD SULFATE
     Indication: Bowel preparation
  2. AMLODIPINE [Concomitant]
     Active Substance: AMLODIPINE BESYLATE
  3. CANDESARTAN [Concomitant]
     Active Substance: CANDESARTAN
  4. GLYBURIDE [Concomitant]
     Active Substance: GLYBURIDE
  5. METFORMIN [Concomitant]
     Active Substance: METFORMIN HYDROCHLORIDE
  6. SITAGLIPTIN [Concomitant]
     Active Substance: SITAGLIPTIN

REACTIONS (1)
  - Hyponatraemia [Recovering/Resolving]
